FAERS Safety Report 7098184-2 (Version None)
Quarter: 2010Q4

REPORT INFORMATION
  Report Type: 
  Country: None (occurrence: None)
  Receive Date: 20101112
  Receipt Date: 20101109
  Transmission Date: 20110411
  Serious: Yes (Disabling, Other)
  Sender: FDA-Public Use
  Company Number: FR-BRISTOL-MYERS SQUIBB COMPANY-15332265

PATIENT
  Age: 83 Year
  Sex: Male
  Weight: 75 kg

DRUGS (3)
  1. SPRYCEL [Suspect]
     Indication: CHRONIC MYELOID LEUKAEMIA
     Dosage: DOSE REDUCED
     Route: 048
     Dates: start: 20050501, end: 20100901
  2. PLAVIX [Concomitant]
     Indication: THROMBOSIS
     Route: 048
     Dates: start: 20100501
  3. TAMSULOSIN HCL [Concomitant]
     Indication: PROSTATIC ADENOMA
     Route: 048
     Dates: start: 20040101

REACTIONS (5)
  - BLADDER CANCER [None]
  - HYPOXIA [None]
  - PLEURAL EFFUSION [None]
  - RETINAL VEIN THROMBOSIS [None]
  - VISUAL ACUITY REDUCED [None]
